FAERS Safety Report 9460502 (Version 1)
Quarter: 2013Q3

REPORT INFORMATION
  Report Type: Spontaneous
  Country: US (occurrence: US)
  Receive Date: 20130815
  Receipt Date: 20130815
  Transmission Date: 20140515
  Serious: Yes (Hospitalization, Other)
  Sender: FDA-Public Use
  Company Number: US-009507513-1308USA002924

PATIENT
  Sex: Male

DRUGS (2)
  1. CLARITIN-D-12 [Suspect]
     Indication: HYPERSENSITIVITY
     Route: 048
  2. CLARITIN-D-12 [Suspect]
     Indication: ASTHMA

REACTIONS (3)
  - Surgery [Unknown]
  - Anxiety [Unknown]
  - Laboratory test abnormal [Unknown]
